FAERS Safety Report 8687243 (Version 2)
Quarter: 2012Q4

REPORT INFORMATION
  Report Type: 
  Country: AU (occurrence: AU)
  Receive Date: 20120727
  Receipt Date: 20120912
  Transmission Date: 20130627
  Serious: Yes (Other)
  Sender: FDA-Public Use
  Company Number: PHHY2012AU064447

PATIENT
  Age: 84 Year
  Sex: Female

DRUGS (2)
  1. ACLASTA [Suspect]
     Dosage: 5 mg, UNK
     Route: 042
     Dates: start: 20110810
  2. ACLASTA [Suspect]
     Dosage: 2.5 mg, UNK
     Route: 042
     Dates: start: 20120726

REACTIONS (2)
  - Chest pain [Recovered/Resolved]
  - Incorrect dose administered [Unknown]
